FAERS Safety Report 5375376-1 (Version None)
Quarter: 2007Q2

REPORT INFORMATION
  Report Type: 
  Country: None (occurrence: None)
  Receive Date: 20070629
  Receipt Date: 20070618
  Transmission Date: 20071010
  Serious: Yes (Hospitalization)
  Sender: FDA-Public Use
  Company Number: JP-AMGEN-US231730

PATIENT
  Age: 81 Year
  Sex: Female

DRUGS (2)
  1. ENBREL [Suspect]
     Indication: RHEUMATOID ARTHRITIS
     Dosage: 25 MG / INJECTION; FREQUENCY NOT SPECIFIED
     Route: 058
     Dates: end: 20070531
  2. PROGRAF [Suspect]

REACTIONS (1)
  - TUBERCULOSIS [None]
